FAERS Safety Report 7321905-8 (Version None)
Quarter: 2011Q1

REPORT INFORMATION
  Report Type: 
  Country: None (occurrence: None)
  Receive Date: 20110228
  Receipt Date: 20110222
  Transmission Date: 20110831
  Serious: Yes (Other)
  Sender: FDA-Public Use
  Company Number: US-ABBOTT-11P-163-0700264-00

PATIENT
  Sex: Male
  Weight: 79.45 kg

DRUGS (5)
  1. HUMIRA [Suspect]
     Indication: PAIN
     Dosage: 80MG 2ND LOADING DOSE
     Dates: start: 20101101, end: 20101101
  2. FOLIC ACID [Concomitant]
     Indication: VITAMIN SUPPLEMENTATION
     Route: 048
  3. HUMIRA [Suspect]
     Route: 058
     Dates: start: 20101201, end: 20110101
  4. HUMIRA [Suspect]
     Indication: CROHN'S DISEASE
     Dosage: 160MG LOADING DOSE
     Route: 058
     Dates: start: 20101101, end: 20101101
  5. LORA TAB [Concomitant]
     Indication: PAIN

REACTIONS (14)
  - ABDOMINAL PAIN [None]
  - LOSS OF CONSCIOUSNESS [None]
  - ULCER [None]
  - WEIGHT DECREASED [None]
  - VISUAL FIELD DEFECT [None]
  - PAIN [None]
  - CONVULSION [None]
  - VISION BLURRED [None]
  - DRUG EFFECT DECREASED [None]
  - INJECTION SITE PAIN [None]
  - ARTHRALGIA [None]
  - OPTIC NEURITIS [None]
  - DIARRHOEA [None]
  - CROHN'S DISEASE [None]
